FAERS Safety Report 7927394 (Version 2)
Quarter: 2012Q4

REPORT INFORMATION
  Report Type: 
  Country: US (occurrence: US)
  Receive Date: 20110503
  Receipt Date: 20121025
  Transmission Date: 20130627
  Serious: Yes (Other)
  Sender: FDA-Public Use
  Company Number: US-US-EMD SERONO, INC.-7056238

PATIENT
  Age: 54 None
  Sex: Female
  Weight: 95 kg

DRUGS (7)
  1. REBIF [Suspect]
     Indication: MULTIPLE SCLEROSIS
     Route: 058
     Dates: start: 20101025
  2. AVAPRO [Concomitant]
     Indication: HYPERTENSION
  3. FUROSEMIDE [Concomitant]
     Indication: HYPERTENSION
  4. LEVEMIR [Concomitant]
     Indication: DIABETES MELLITUS
  5. HUMALOG [Concomitant]
     Indication: DIABETES MELLITUS
  6. TYLENOL [Concomitant]
     Indication: PREMEDICATION
  7. IBUPROFEN [Concomitant]
     Indication: PREMEDICATION

REACTIONS (9)
  - Cardiac valve disease [Not Recovered/Not Resolved]
  - Cardiomegaly [Not Recovered/Not Resolved]
  - Hepatomegaly [Not Recovered/Not Resolved]
  - Cholelithiasis [Not Recovered/Not Resolved]
  - Fungal infection [Recovered/Resolved]
  - Streptococcal abscess [Recovered/Resolved]
  - Anal injury [Unknown]
  - Fall [Not Recovered/Not Resolved]
  - Visual acuity reduced [Recovered/Resolved]
